FAERS Safety Report 12890643 (Version 1)
Quarter: 2016Q4

REPORT INFORMATION
  Report Type: Spontaneous
  Country: US (occurrence: US)
  Receive Date: 20161027
  Receipt Date: 20161027
  Transmission Date: 20170207
  Serious: No
  Sender: FDA-Public Use
  Company Number: US-JAZZ-2016-US-015767

PATIENT
  Sex: Male

DRUGS (10)
  1. NUVIGIL [Concomitant]
     Active Substance: ARMODAFINIL
  2. BENADRYL ALLERGY [Concomitant]
     Active Substance: DIPHENHYDRAMINE HYDROCHLORIDE
  3. ZALEPLON. [Concomitant]
     Active Substance: ZALEPLON
  4. XYREM [Suspect]
     Active Substance: SODIUM OXYBATE
     Indication: NARCOLEPSY
     Dosage: 3 G, BID
     Route: 048
     Dates: start: 201608
  5. FLONASE [Concomitant]
     Active Substance: FLUTICASONE PROPIONATE
  6. MUCINEX D [Concomitant]
     Active Substance: GUAIFENESIN\PSEUDOEPHEDRINE HYDROCHLORIDE
  7. VENTOLIN HFA [Concomitant]
     Active Substance: ALBUTEROL SULFATE
  8. EPIPEN [Concomitant]
     Active Substance: EPINEPHRINE
  9. CLARITIN [Concomitant]
     Active Substance: LORATADINE
  10. MELATONIN [Concomitant]
     Active Substance: MELATONIN

REACTIONS (1)
  - Dyspnoea [Unknown]
